FAERS Safety Report 4920019-1 (Version None)
Quarter: 2006Q1

REPORT INFORMATION
  Report Type: 
  Country: None (occurrence: None)
  Receive Date: 20060223
  Receipt Date: 20060213
  Transmission Date: 20060701
  Serious: Yes (Other)
  Sender: FDA-Public Use
  Company Number: 2006UW02361

PATIENT
  Age: 43 Year
  Sex: Female
  Weight: 54.9 kg

DRUGS (1)
  1. ZOMIG [Suspect]
     Indication: MIGRAINE
     Route: 048
     Dates: start: 19980101

REACTIONS (2)
  - EPISTAXIS [None]
  - MIGRAINE [None]
